FAERS Safety Report 10556419 (Version 2)
Quarter: 2014Q4

REPORT INFORMATION
  Report Type: Report from Study
  Country: CN (occurrence: CN)
  Receive Date: 20141031
  Receipt Date: 20141031
  Transmission Date: 20150529
  Serious: Yes (Other)
  Sender: FDA-Public Use
  Company Number: CN-BRISTOL-MYERS SQUIBB COMPANY-21362892

PATIENT
  Age: 33 Year
  Sex: Female
  Weight: 106 kg

DRUGS (7)
  1. BENZBROMARONE [Suspect]
     Active Substance: BENZBROMARONE
     Indication: HYPERURICAEMIA
     Dates: start: 2014, end: 20141006
  2. BYETTA [Suspect]
     Active Substance: EXENATIDE
     Indication: AMENORRHOEA
     Dosage: 10MCG
     Route: 058
     Dates: start: 20140825, end: 20141006
  3. BYETTA [Suspect]
     Active Substance: EXENATIDE
     Indication: WEIGHT DECREASED
     Dosage: 10MCG
     Route: 058
     Dates: start: 20140825, end: 20141006
  4. BYETTA [Suspect]
     Active Substance: EXENATIDE
     Indication: ENDOCRINE DISORDER
     Dosage: 10MCG
     Route: 058
     Dates: start: 20140825, end: 20141006
  5. BYETTA [Suspect]
     Active Substance: EXENATIDE
     Indication: POLYCYSTIC OVARIES
     Dosage: 10MCG
     Route: 058
     Dates: start: 20140825, end: 20141006
  6. LEVOTHYROXINE SODIUM. [Concomitant]
     Active Substance: LEVOTHYROXINE SODIUM
  7. SODIUM BICARBONATE. [Concomitant]
     Active Substance: SODIUM BICARBONATE

REACTIONS (3)
  - Off label use [Unknown]
  - Pregnancy [Recovered/Resolved]
  - Abortion induced [Unknown]

NARRATIVE: CASE EVENT DATE: 2014
